FAERS Safety Report 5397686-4 (Version None)
Quarter: 2007Q3

REPORT INFORMATION
  Report Type: 
  Country: None (occurrence: None)
  Receive Date: 20070723
  Receipt Date: 20070712
  Transmission Date: 20080115
  Serious: Yes (Other)
  Sender: FDA-Public Use
  Company Number: CHNY2007PT02550

PATIENT
  Age: 70 Year
  Sex: Male

DRUGS (1)
  1. LAMISIL [Suspect]
     Indication: TINEA PEDIS
     Dosage: TOPICAL
     Route: 061
     Dates: start: 20070601

REACTIONS (3)
  - ERYTHEMA MULTIFORME [None]
  - OEDEMA [None]
  - PRURITUS [None]
